FAERS Safety Report 6355268-1 (Version None)
Quarter: 2009Q3

REPORT INFORMATION
  Report Type: 
  Country: None (occurrence: None)
  Receive Date: 20090914
  Receipt Date: 20090903
  Transmission Date: 20100115
  Serious: Yes (Hospitalization)
  Sender: FDA-Public Use
  Company Number: US-ROCHE-654756

PATIENT
  Sex: Male

DRUGS (14)
  1. MYCOPHENOLATE MOFETIL [Suspect]
     Route: 065
     Dates: start: 20060526
  2. BELATACEPT [Suspect]
     Route: 042
     Dates: start: 20060525
  3. PREDNISONE [Suspect]
     Route: 065
     Dates: start: 20080520
  4. SEPTRA [Concomitant]
     Dates: start: 20060815
  5. ZETIA [Concomitant]
     Dates: start: 20060619
  6. LABETALOL HCL [Concomitant]
     Dates: start: 20061229
  7. RISEDRONATE SODIUM [Concomitant]
     Dates: start: 20071108
  8. CALCITRIOL [Concomitant]
     Dates: start: 20070315
  9. LIPITOR [Concomitant]
     Dates: start: 20070303
  10. SENOKOT [Concomitant]
     Dates: start: 20080412
  11. INSULINE LISPRO [Concomitant]
     Dates: start: 20080611
  12. LANTUS [Concomitant]
     Dates: start: 20081106
  13. ASPIRIN [Concomitant]
     Dates: start: 20090211
  14. PLAVIX [Concomitant]
     Dates: start: 20090211

REACTIONS (2)
  - NEUROPATHIC ARTHROPATHY [None]
  - WOUND INFECTION [None]
